FAERS Safety Report 7890971 (Version 8)
Quarter: 2013Q2

REPORT INFORMATION
  Report Type: Report from Study
  Country: US (occurrence: US)
  Receive Date: 20110408
  Receipt Date: 20130502
  Transmission Date: 20140414
  Serious: Yes (Death, Life-Threatening, Hospitalization)
  Sender: FDA-Public Use
  Company Number: US-BRISTOL-MYERS SQUIBB COMPANY-15647340

PATIENT
  Age: 64 Year
  Sex: Male
  Weight: 85.71 kg

DRUGS (18)
  1. NORVASC [Concomitant]
     Route: 065
     Dates: start: 1995
  2. METOPROLOL [Concomitant]
     Dosage: EVERY MORNING
     Route: 065
     Dates: start: 1995
  3. ASPIRIN [Concomitant]
     Route: 065
  4. VITAMIN B COMPLEX [Concomitant]
     Route: 065
  5. CALCIUM ACETATE [Concomitant]
     Dosage: 2 TABLETS
     Route: 048
  6. TYLENOL [Concomitant]
     Route: 065
  7. ALBUTEROL [Concomitant]
  8. MILK OF MAGNESIA [Concomitant]
     Route: 065
  9. DULCOLAX [Concomitant]
     Route: 054
  10. CHLORPROMAZINE [Concomitant]
     Indication: HICCUPS
     Route: 065
  11. CRESTOR [Concomitant]
     Route: 048
  12. CETUXIMAB [Suspect]
     Indication: HEAD AND NECK CANCER
     Dosage: 04-APR-2011 DISCONTINUED FROM STUDY
     Route: 042
     Dates: start: 20110317, end: 20110317
  13. CISPLATIN [Suspect]
     Indication: HEAD AND NECK CANCER
     Dosage: DISCONTINUED FROM STUDY ON 04APR11
     Route: 042
     Dates: start: 20110317, end: 20110317
  14. 5-FLUOROURACIL [Suspect]
     Indication: HEAD AND NECK CANCER
     Dosage: DISCONTINUED FROM STUDY ON 04APR11
     Route: 042
     Dates: start: 20110317, end: 20110321
  15. DIOVAN HCT [Concomitant]
     Dosage: 1DF=320/25 UNIT NOT SPECIFIED.ONCE EVERY MORNING
     Route: 065
     Dates: start: 1995
  16. HYDROCHLOROTHIAZIDE [Concomitant]
  17. PRILOSEC [Concomitant]
     Dosage: ONCE EVERY MORNING
     Route: 065
     Dates: start: 2003
  18. PRAVASTATIN SODIUM [Concomitant]
     Dosage: AT BED TIME
     Route: 065
     Dates: start: 1995

REACTIONS (4)
  - Cardiac arrest [Fatal]
  - Sepsis [Not Recovered/Not Resolved]
  - Renal failure acute [Not Recovered/Not Resolved]
  - Tumour lysis syndrome [Recovered/Resolved]
